FAERS Safety Report 4533906-3 (Version None)
Quarter: 2004Q4

REPORT INFORMATION
  Report Type: 
  Country: None (occurrence: None)
  Receive Date: 20041202
  Receipt Date: 20040119
  Transmission Date: 20050328
  Serious: Yes (Death)
  Sender: FDA-Public Use
  Company Number: 356390

PATIENT
  Age: 37 Year
  Sex: Female

DRUGS (5)
  1. VALIUM [Suspect]
  2. FENTANYL (FENTANYL CITRATE) [Suspect]
  3. PAROXETINE (PAROXETINE) [Suspect]
     Indication: DRUG USE FOR UNKNOWN INDICATION
  4. HYDROXYZINE [Suspect]
     Indication: DRUG USE FOR UNKNOWN INDICATION
  5. PROPOXYPHENE (PROPOXYPHENE HYDROCHLORIDE) [Suspect]
     Indication: DRUG USE FOR UNKNOWN INDICATION

REACTIONS (2)
  - NO ADVERSE EFFECT [None]
  - OVERDOSE [None]
